FAERS Safety Report 23993889 (Version 1)
Quarter: 2024Q2

REPORT INFORMATION
  Report Type: Spontaneous
  Country: US (occurrence: None)
  Receive Date: 20240618
  Receipt Date: 20240618
  Transmission Date: 20240716
  Serious: No
  Sender: FDA-Public Use
  Company Number: None

PATIENT
  Sex: 0

DRUGS (3)
  1. BENADRYL [Suspect]
     Active Substance: DIPHENHYDRAMINE HYDROCHLORIDE
  2. OCREVUS [Suspect]
     Active Substance: OCRELIZUMAB
  3. PREDNISONE [Suspect]
     Active Substance: PREDNISONE

REACTIONS (7)
  - Hypoglycaemia [None]
  - Hyperhidrosis [None]
  - Rash [None]
  - Vein collapse [None]
  - Throat tightness [None]
  - Fatigue [None]
  - Asthenia [None]
